FAERS Safety Report 13196547 (Version 1)
Quarter: 2017Q1

REPORT INFORMATION
  Report Type: Spontaneous
  Country: US (occurrence: US)
  Receive Date: 20170207
  Receipt Date: 20170207
  Transmission Date: 20170428
  Serious: Yes (Hospitalization)
  Sender: FDA-Public Use
  Company Number: None

PATIENT
  Age: 63 Year
  Sex: Female
  Weight: 75.4 kg

DRUGS (13)
  1. CAREDILOL [Concomitant]
  2. ASPIRIN. [Concomitant]
     Active Substance: ASPIRIN
  3. PREDNISONE. [Concomitant]
     Active Substance: PREDNISONE
  4. LEVOTHYROXINE. [Concomitant]
     Active Substance: LEVOTHYROXINE
  5. WARFARIN [Concomitant]
     Active Substance: WARFARIN
  6. IRBESARTAN. [Concomitant]
     Active Substance: IRBESARTAN
  7. VANCOMYCIN [Concomitant]
     Active Substance: VANCOMYCIN
  8. GLIPIZIDE. [Suspect]
     Active Substance: GLIPIZIDE
     Indication: DIABETES MELLITUS
     Route: 048
  9. FISH OIL [Concomitant]
     Active Substance: FISH OIL
  10. SIROLIMUS. [Concomitant]
     Active Substance: SIROLIMUS
  11. MYCOPHENOLATE [Concomitant]
     Active Substance: MYCOPHENOLIC ACID
  12. METOCLOPRAMIDE. [Concomitant]
     Active Substance: METOCLOPRAMIDE
  13. ATORVASTATIN [Concomitant]
     Active Substance: ATORVASTATIN

REACTIONS (4)
  - Blood glucose decreased [None]
  - Haemodialysis [None]
  - Clostridium difficile infection [None]
  - Drug administration error [None]

NARRATIVE: CASE EVENT DATE: 20170206
